FAERS Safety Report 9618551 (Version 1)
Quarter: 2013Q4

REPORT INFORMATION
  Report Type: Spontaneous
  Country: US (occurrence: US)
  Receive Date: 20131014
  Receipt Date: 20131014
  Transmission Date: 20140711
  Serious: No
  Sender: FDA-Public Use
  Company Number: US-PFIZER INC-2013291969

PATIENT
  Age: 79 Year
  Sex: Female
  Weight: 90.7 kg

DRUGS (2)
  1. NEURONTIN [Suspect]
     Indication: HERPES ZOSTER
     Dosage: 300 MG, 2X/DAY
     Dates: start: 201208
  2. LOPRESSOR [Concomitant]
     Indication: HYPERTENSION
     Dosage: 25MG IN MORNING AND 12.5MG IN EVENING (2X/DAY)

REACTIONS (2)
  - Off label use [Unknown]
  - Somnolence [Unknown]
